FAERS Safety Report 19549369 (Version 1)
Quarter: 2021Q3

REPORT INFORMATION
  Report Type: Spontaneous
  Country: US (occurrence: US)
  Receive Date: 20210715
  Receipt Date: 20210715
  Transmission Date: 20211014
  Serious: No
  Sender: FDA-Public Use
  Company Number: None

PATIENT
  Age: 77 Year
  Sex: Female
  Weight: 81.65 kg

DRUGS (8)
  1. LOSARTAN. [Concomitant]
     Active Substance: LOSARTAN
  2. WARFARIN [Suspect]
     Active Substance: WARFARIN
     Indication: ANTICOAGULANT THERAPY
     Dosage: ?          QUANTITY:1 DF DOSAGE FORM;?
     Route: 048
     Dates: start: 20210208, end: 20210217
  3. NIFEDIPINE. [Concomitant]
     Active Substance: NIFEDIPINE
  4. ELIQUIS [Concomitant]
     Active Substance: APIXABAN
  5. ATORVASTATIN [Concomitant]
     Active Substance: ATORVASTATIN
  6. ISOSORB MONO [Concomitant]
     Active Substance: ISOSORBIDE MONONITRATE
  7. CARVEDILOL. [Concomitant]
     Active Substance: CARVEDILOL
  8. LATANOPROST 5% [Concomitant]

REACTIONS (15)
  - Visual impairment [None]
  - Decreased appetite [None]
  - Headache [None]
  - Back pain [None]
  - Gait disturbance [None]
  - Oedema peripheral [None]
  - Balance disorder [None]
  - Swollen tongue [None]
  - Weight decreased [None]
  - Confusional state [None]
  - Asthenia [None]
  - Throat tightness [None]
  - Dizziness [None]
  - Dysarthria [None]
  - Tremor [None]
